FAERS Safety Report 15517579 (Version 1)
Quarter: 2018Q4

REPORT INFORMATION
  Report Type: Report from Study
  Country: US (occurrence: US)
  Receive Date: 20181017
  Receipt Date: 20181017
  Transmission Date: 20190205
  Serious: Yes (Hospitalization)
  Sender: FDA-Public Use
  Company Number: US-UCBSA-2018012408

PATIENT
  Age: 38 Year
  Sex: Female

DRUGS (6)
  1. ATIVAN [Concomitant]
     Active Substance: LORAZEPAM
     Indication: SEIZURE
  2. KEPPRA [Suspect]
     Active Substance: LEVETIRACETAM
     Indication: SEIZURE
     Dosage: 1000 MG, ONCE
     Route: 042
     Dates: start: 2018, end: 2018
  3. LACOSAMIDE. [Suspect]
     Active Substance: LACOSAMIDE
     Dosage: REDUCED DOSE
     Dates: start: 2018
  4. LACOSAMIDE. [Suspect]
     Active Substance: LACOSAMIDE
     Indication: SEIZURE
     Dosage: UNK
     Dates: start: 20180208, end: 2018
  5. PHENOBARBITAL. [Concomitant]
     Active Substance: PHENOBARBITAL
     Indication: SEIZURE
  6. TOPAMAX [Concomitant]
     Active Substance: TOPIRAMATE
     Indication: MIGRAINE

REACTIONS (6)
  - Dizziness [Unknown]
  - Sinusitis [Not Recovered/Not Resolved]
  - Blood glucose increased [Unknown]
  - Seizure [Not Recovered/Not Resolved]
  - Bronchitis [Not Recovered/Not Resolved]
  - Migraine [Unknown]

NARRATIVE: CASE EVENT DATE: 201802
